FAERS Safety Report 10221352 (Version 2)
Quarter: 2014Q2

REPORT INFORMATION
  Report Type: Report from Study
  Country: FR (occurrence: FR)
  Receive Date: 20140606
  Receipt Date: 20140611
  Transmission Date: 20141212
  Serious: Yes (Hospitalization, Other)
  Sender: FDA-Public Use
  Company Number: FR-PFIZER INC-2014153602

PATIENT
  Age: 67 Year
  Sex: Female
  Weight: 70 kg

DRUGS (10)
  1. SOMAVERT [Suspect]
     Indication: ACROMEGALY
     Dosage: 20 MG, 7 INJECTIONS WEEKLY
     Dates: start: 20060202, end: 20101210
  2. GLUCOPHAGE [Concomitant]
     Indication: TYPE 2 DIABETES MELLITUS
     Dosage: UNK
     Route: 048
     Dates: start: 1996
  3. DAONIL [Concomitant]
     Indication: TYPE 2 DIABETES MELLITUS
     Dosage: UNK
     Dates: start: 1996
  4. LIPANTHYL [Concomitant]
     Indication: LIPID METABOLISM DISORDER
     Dosage: UNK
     Dates: start: 19960218
  5. LEVOTHYROX [Concomitant]
     Indication: BLOOD THYROID STIMULATING HORMONE DECREASED
     Dosage: UNK
     Dates: start: 19960218
  6. AMAREL [Concomitant]
     Indication: TYPE 2 DIABETES MELLITUS
     Dosage: UNK
     Dates: start: 199806
  7. LANTUS [Concomitant]
     Indication: TYPE 2 DIABETES MELLITUS
     Dosage: UNK
     Dates: start: 20030915
  8. DIAMICRON [Concomitant]
     Indication: TYPE 2 DIABETES MELLITUS
     Dosage: UNK
     Route: 048
     Dates: start: 20030915
  9. DOSTINEX [Concomitant]
     Indication: BLOOD GROWTH HORMONE INCREASED
     Dosage: UNK
     Dates: start: 20030915
  10. GLUCOR [Concomitant]
     Indication: TYPE 2 DIABETES MELLITUS
     Dosage: UNK
     Route: 048
     Dates: start: 20080402

REACTIONS (1)
  - Cholelithiasis [Recovered/Resolved]
